FAERS Safety Report 6314428-6 (Version None)
Quarter: 2009Q3

REPORT INFORMATION
  Report Type: 
  Country: None (occurrence: None)
  Receive Date: 20090817
  Receipt Date: 20090817
  Transmission Date: 20100115
  Serious: Yes (Other)
  Sender: FDA-Public Use
  Company Number: None

PATIENT
  Sex: Female
  Weight: 75.5 kg

DRUGS (2)
  1. FOSAMAX [Suspect]
     Indication: OSTEOPENIA
     Dosage: 10MG QD PO
     Route: 048
     Dates: start: 19991210, end: 20000201
  2. CALCITONIN SALMON [Suspect]
     Indication: OSTEOPENIA
     Dosage: QD NASAL
     Route: 045

REACTIONS (3)
  - CAUSTIC INJURY [None]
  - DYSPEPSIA [None]
  - FLATULENCE [None]
